FAERS Safety Report 5776715-X (Version None)
Quarter: 2008Q2

REPORT INFORMATION
  Report Type: 
  Country: None (occurrence: None)
  Receive Date: 20080618
  Receipt Date: 20080225
  Transmission Date: 20081010
  Serious: No
  Sender: FDA-Public Use
  Company Number: US-ASTRAZENECA-2008UW03904

PATIENT
  Age: 90 Year
  Sex: Male

DRUGS (1)
  1. SYMBICORT [Suspect]
     Indication: ASTHMA
     Dosage: 80MG/4.5, 2 PUFF DAILY
     Route: 055
     Dates: start: 20071201

REACTIONS (3)
  - HEAD DISCOMFORT [None]
  - HEARING IMPAIRED [None]
  - NASAL CONGESTION [None]
